FAERS Safety Report 9641143 (Version 2)
Quarter: 2013Q4

REPORT INFORMATION
  Report Type: Spontaneous
  Country: BR (occurrence: BR)
  Receive Date: 20131023
  Receipt Date: 20131230
  Transmission Date: 20140711
  Serious: Yes (Other)
  Sender: FDA-Public Use
  Company Number: BR-AMGEN-BRASP2013074736

PATIENT
  Age: 53 Year
  Sex: Male
  Weight: 66 kg

DRUGS (3)
  1. ENBREL [Suspect]
     Indication: RHEUMATOID ARTHRITIS
     Dosage: 25 MG, 2X/WEEK
     Route: 058
     Dates: start: 201005
  2. PREDNISONE [Concomitant]
     Indication: RHEUMATOID ARTHRITIS
     Dosage: 5 MG, DAILY
  3. CALCIUM VIT D [Concomitant]
     Dosage: 600 MG, DAILY

REACTIONS (4)
  - Rheumatic fever [Unknown]
  - Arthralgia [Unknown]
  - Cough [Recovered/Resolved]
  - Influenza [Recovered/Resolved]
